FAERS Safety Report 5696989-3 (Version None)
Quarter: 2008Q2

REPORT INFORMATION
  Report Type: 
  Country: None (occurrence: None)
  Receive Date: 20080408
  Receipt Date: 20070226
  Transmission Date: 20081010
  Serious: No
  Sender: FDA-Public Use
  Company Number: US-BAYER-US-2007-006875

PATIENT
  Age: 24 Year
  Sex: Female
  Weight: 113 kg

DRUGS (2)
  1. YASMIN [Suspect]
     Indication: CONTRACEPTION
     Route: 048
     Dates: start: 20050201, end: 20061209
  2. VITAMIN TAB [Concomitant]

REACTIONS (3)
  - AMENORRHOEA [None]
  - ANXIETY [None]
  - METRORRHAGIA [None]
